FAERS Safety Report 9733681 (Version 3)
Quarter: 2013Q4

REPORT INFORMATION
  Report Type: Report from Study
  Country: BD (occurrence: BD)
  Receive Date: 20131205
  Receipt Date: 20131210
  Transmission Date: 20140711
  Serious: Yes (Death, Other)
  Sender: FDA-Public Use
  Company Number: PHHY2013BD001788

PATIENT
  Age: 96 Year
  Sex: Female

DRUGS (5)
  1. ACLASTA [Suspect]
     Indication: OSTEOPOROSIS
     Dosage: 5 MG/100 ML
     Route: 042
  2. ACLASTA [Suspect]
     Dosage: 5 MG/100 ML
     Route: 042
  3. ACLASTA [Suspect]
     Dosage: 5 MG/100 ML
     Route: 042
  4. ACLASTA [Suspect]
     Dosage: 5 MG/100 ML
     Route: 042
  5. ACLASTA [Suspect]
     Dosage: 5 MG/100 ML
     Route: 042
     Dates: start: 20121021

REACTIONS (3)
  - Death [Fatal]
  - Cardiac disorder [Unknown]
  - Renal disorder [Unknown]
